FAERS Safety Report 15226668 (Version 1)
Quarter: 2018Q3

REPORT INFORMATION
  Report Type: Spontaneous
  Country: US (occurrence: US)
  Receive Date: 20180801
  Receipt Date: 20180801
  Transmission Date: 20181010
  Serious: No
  Sender: FDA-Public Use
  Company Number: US-SA-2018SA206778

PATIENT
  Age: 34 Year
  Sex: Female

DRUGS (10)
  1. DARVON [BETAHISTINE MESILATE] [Concomitant]
     Dosage: 65 MG, Q4H
     Route: 048
  2. DECADRON [Concomitant]
     Active Substance: DEXAMETHASONE
     Dosage: 4 MG, QD
     Route: 048
  3. TAXOTERE [Suspect]
     Active Substance: DOCETAXEL
     Dosage: 139 MG, QCY
  4. XELODA [Suspect]
     Active Substance: CAPECITABINE
     Dosage: 4 DF, BID
  5. COMPAZINE [PROCHLORPERAZINE MALEATE] [Concomitant]
     Dosage: 10 MG, Q6H
     Route: 048
  6. DEXAMETHASONE. [Concomitant]
     Active Substance: DEXAMETHASONE
     Dosage: 4 MG, BID
  7. ZOMETA [Concomitant]
     Active Substance: ZOLEDRONIC ACID
     Dosage: 4 MG, 1X
  8. EMLA [LIDOCAINE HYDROCHLORIDE;PRILOCAINE HYDROCHLORIDE] [Concomitant]
     Route: 061
  9. TAXOTERE [Suspect]
     Active Substance: DOCETAXEL
     Dosage: UNK
  10. CAPECITABINE. [Suspect]
     Active Substance: CAPECITABINE
     Dosage: 3500 MG, QD

REACTIONS (4)
  - Oral discomfort [Unknown]
  - Fatigue [Unknown]
  - Alopecia [Unknown]
  - Constipation [Unknown]
